FAERS Safety Report 9611498 (Version 1)
Quarter: 2013Q4

REPORT INFORMATION
  Report Type: Spontaneous
  Country: US (occurrence: US)
  Receive Date: 20131010
  Receipt Date: 20131010
  Transmission Date: 20140711
  Serious: No
  Sender: FDA-Public Use
  Company Number: US-009507513-1310USA004569

PATIENT
  Age: 55 Year
  Sex: Female

DRUGS (1)
  1. VICTRELIS [Suspect]
     Indication: HEPATITIS C
     Dosage: 800 MG (FOUR 200 MG CAPSULES) BY MOUTH THREE TIMES A DAY (EVERY 7-9 HOURS) START ON WEEK 5
     Route: 048
     Dates: start: 20130524

REACTIONS (1)
  - Pruritus [Unknown]
